FAERS Safety Report 19444777 (Version 2)
Quarter: 2021Q3

REPORT INFORMATION
  Report Type: Report from Study
  Country: DE (occurrence: DE)
  Receive Date: 20210621
  Receipt Date: 20210716
  Transmission Date: 20211014
  Serious: Yes (Other)
  Sender: FDA-Public Use
  Company Number: DE-TAKEDA-2020TUS053850

PATIENT
  Age: 34 Year
  Sex: Female

DRUGS (20)
  1. TEDUGLUTIDE [Suspect]
     Active Substance: TEDUGLUTIDE
     Dosage: 2.7 MILLIGRAM (TED DAILY DOSES 0.0500 MG/KG, TED DOSES PER WEEK 7)
     Route: 065
     Dates: start: 201806, end: 201907
  2. TEDUGLUTIDE [Suspect]
     Active Substance: TEDUGLUTIDE
     Dosage: 2.7 MILLIGRAM (TED DAILY DOSES 0.0500 MG/KG, TED DOSES PER WEEK 7)
     Route: 065
     Dates: start: 201806, end: 201907
  3. IRON [Concomitant]
     Active Substance: IRON
     Dosage: UNK UNK, QD
     Route: 048
     Dates: start: 202006
  4. CALCIUM [Concomitant]
     Active Substance: CALCIUM
     Dosage: UNK UNK, QD
     Route: 048
     Dates: start: 202006
  5. TEDUGLUTIDE [Suspect]
     Active Substance: TEDUGLUTIDE
     Indication: SHORT-BOWEL SYNDROME
     Dosage: 3.1 MILLIGRAM (TED DAILY DOSES 0.0500 MG/KG, TED DOSES PER WEEK 7)
     Route: 065
     Dates: start: 20141111, end: 201806
  6. TEDUGLUTIDE [Suspect]
     Active Substance: TEDUGLUTIDE
     Dosage: 0.29 MILLIGRAM (TED DAILY DOSES 0.0500 MG/KG, TED DOSES PER WEEK 7)
     Route: 065
     Dates: start: 201907, end: 202003
  7. TEDUGLUTIDE [Suspect]
     Active Substance: TEDUGLUTIDE
     Dosage: 0.29 MILLIGRAM (TED DAILY DOSES 0.0500 MG/KG, TED DOSES PER WEEK 7)
     Route: 065
     Dates: start: 201907, end: 202003
  8. TEDUGLUTIDE [Suspect]
     Active Substance: TEDUGLUTIDE
     Dosage: 0.29 MILLIGRAM (TED DAILY DOSES 0.0500 MG/KG, TED DOSES PER WEEK 7)
     Route: 065
     Dates: start: 201907, end: 202003
  9. XIFAXAN [Concomitant]
     Active Substance: RIFAXIMIN
     Indication: DIARRHOEA
     Dosage: 200 MILLIGRAM, BID
     Route: 048
     Dates: start: 20200624
  10. ADDEL TRACE [Concomitant]
     Active Substance: ELECTROLYTES NOS\MINERALS
     Indication: PRODUCT USED FOR UNKNOWN INDICATION
     Dosage: 999 MILLILITER
     Route: 042
     Dates: start: 201806
  11. TEDUGLUTIDE [Suspect]
     Active Substance: TEDUGLUTIDE
     Dosage: 2.7 MILLIGRAM (TED DAILY DOSES 0.0500 MG/KG, TED DOSES PER WEEK 7)
     Route: 065
     Dates: start: 201806, end: 201907
  12. CERNEVIT [Concomitant]
     Active Substance: VITAMINS
     Indication: PRODUCT USED FOR UNKNOWN INDICATION
     Dosage: 750 MILLIGRAM
     Route: 042
     Dates: start: 201806
  13. TEDUGLUTIDE [Suspect]
     Active Substance: TEDUGLUTIDE
     Dosage: 0.29 MILLIGRAM (TED DAILY DOSES 0.0500 MG/KG, TED DOSES PER WEEK 7)
     Route: 065
     Dates: start: 201907, end: 202003
  14. TEDUGLUTIDE [Suspect]
     Active Substance: TEDUGLUTIDE
     Indication: SHORT-BOWEL SYNDROME
     Dosage: 3.1 MILLIGRAM (TED DAILY DOSES 0.0500 MG/KG, TED DOSES PER WEEK 7)
     Route: 065
     Dates: start: 20141111, end: 201806
  15. TEDUGLUTIDE [Suspect]
     Active Substance: TEDUGLUTIDE
     Indication: SHORT-BOWEL SYNDROME
     Dosage: 3.1 MILLIGRAM (TED DAILY DOSES 0.0500 MG/KG, TED DOSES PER WEEK 7)
     Route: 065
     Dates: start: 20141111, end: 201806
  16. TEDUGLUTIDE [Suspect]
     Active Substance: TEDUGLUTIDE
     Indication: SHORT-BOWEL SYNDROME
     Dosage: 3.1 MILLIGRAM (TED DAILY DOSES 0.0500 MG/KG, TED DOSES PER WEEK 7)
     Route: 065
     Dates: start: 20141111, end: 201806
  17. TEDUGLUTIDE [Suspect]
     Active Substance: TEDUGLUTIDE
     Dosage: 2.7 MILLIGRAM (TED DAILY DOSES 0.0500 MG/KG, TED DOSES PER WEEK 7)
     Route: 065
     Dates: start: 201806, end: 201907
  18. VITAMIN A [RETINOL] [Concomitant]
     Active Substance: RETINOL
     Indication: VITAMIN A DEFICIENCY
     Dosage: 1000 MICROGRAM, MONTHLY
     Route: 030
     Dates: start: 201906
  19. MAGNESIUM [Concomitant]
     Active Substance: MAGNESIUM
     Dosage: UNK UNK, QD
     Route: 048
     Dates: start: 202006
  20. RIFAXIMIN. [Concomitant]
     Active Substance: RIFAXIMIN
     Indication: DIARRHOEA
     Dosage: 200 MILLIGRAM, BID
     Route: 048
     Dates: start: 20200624

REACTIONS (1)
  - Aortic stenosis [Not Recovered/Not Resolved]

NARRATIVE: CASE EVENT DATE: 202003
